FAERS Safety Report 4439808-5 (Version None)
Quarter: 2004Q3

REPORT INFORMATION
  Report Type: 
  Country: None (occurrence: None)
  Receive Date: 20040831
  Receipt Date: 20040824
  Transmission Date: 20050211
  Serious: Yes (Hospitalization, Disabling)
  Sender: FDA-Public Use
  Company Number: HQ8621520NOV2001

PATIENT
  Age: 36 Year
  Sex: Female

DRUGS (8)
  1. DIMETAPP [Suspect]
     Indication: NASOPHARYNGITIS
     Dosage: ORAL
     Route: 048
  2. ADVIL [Suspect]
     Indication: NASOPHARYNGITIS
     Dosage: ORAL
     Route: 048
  3. DEXATRIM (CAFFEINE/PHENYLPROPANOLAMINE HYDROCHLORIDE,) [Suspect]
  4. SUDAFED 12 HOUR [Suspect]
  5. TAVIST-D (CLEMASTINE FUMARATE/PHENYLPROPANOLAMINE  HYDROCHLORIDE,) [Suspect]
     Indication: HYPERSENSITIVITY
     Dosage: ^2^, ORAL
     Route: 048
  6. TAVIST-D (CLEMASTINE FUMARATE/PHENYLPROPANOLAMINE  HYDROCHLORIDE,) [Suspect]
     Indication: INFLUENZA
     Dosage: ^2^, ORAL
     Route: 048
  7. TAVIST-D (CLEMASTINE FUMARATE/PHENYLPROPANOLAMINE  HYDROCHLORIDE,) [Suspect]
     Indication: NASOPHARYNGITIS
     Dosage: ^2^, ORAL
     Route: 048
  8. TAVIST-D (CLEMASTINE FUMARATE/PHENYLPROPANOLAMINE  HYDROCHLORIDE,) [Suspect]
     Indication: SINUS CONGESTION
     Dosage: ^2^, ORAL
     Route: 048

REACTIONS (4)
  - CEREBROVASCULAR ACCIDENT [None]
  - INTRACRANIAL ANEURYSM [None]
  - LACUNAR INFARCTION [None]
  - SUBARACHNOID HAEMORRHAGE [None]
